FAERS Safety Report 9441786 (Version 2)
Quarter: 2013Q3

REPORT INFORMATION
  Report Type: Spontaneous
  Country: US (occurrence: US)
  Receive Date: 20130806
  Receipt Date: 20130829
  Transmission Date: 20140515
  Serious: Yes (Other)
  Sender: FDA-Public Use
  Company Number: US-PFIZER INC-2013196593

PATIENT
  Age: 31 Year
  Sex: Female

DRUGS (10)
  1. LYRICA [Suspect]
     Indication: CONVULSION
     Dosage: 100 MG, 2X/DAY
     Route: 048
  2. VIMPAT [Concomitant]
     Dosage: UNK
  3. ZONEGRAN [Concomitant]
     Indication: EPILEPSY
     Dosage: UNK
  4. CARAFATE [Concomitant]
     Dosage: UNK
  5. PRILOSEC [Concomitant]
     Dosage: UNK
  6. MOTRIN [Concomitant]
     Dosage: UNK
  7. FOLIC ACID [Concomitant]
     Dosage: UNK
  8. PROZAC [Concomitant]
     Dosage: UNK
  9. ABILIFY [Concomitant]
     Dosage: UNK
  10. XANAX [Concomitant]
     Dosage: UNK

REACTIONS (1)
  - Convulsion [Recovered/Resolved]
